FAERS Safety Report 9928538 (Version 1)
Quarter: 2014Q1

REPORT INFORMATION
  Report Type: Report from Study
  Country: US (occurrence: US)
  Receive Date: 20140227
  Receipt Date: 20140227
  Transmission Date: 20141002
  Serious: Yes (Other)
  Sender: FDA-Public Use
  Company Number: US-ROCHE-1336313

PATIENT
  Sex: Male

DRUGS (19)
  1. LUCENTIS [Suspect]
     Indication: CYSTOID MACULAR OEDEMA
     Route: 050
  2. LUCENTIS [Suspect]
     Indication: DIABETIC RETINAL OEDEMA
  3. LUCENTIS [Suspect]
     Indication: DIABETIC RETINOPATHY
  4. BEVACIZUMAB [Suspect]
     Indication: PRODUCT USED FOR UNKNOWN INDICATION
     Route: 065
  5. CYANOCOBALAMIN [Concomitant]
     Dosage: INJECT 1 ML INTRAMUSCULARLY ONCE EVERY MONTH
     Route: 030
  6. CYANOCOBALAMIN [Concomitant]
     Dosage: 1 TAB PO DAILY
     Route: 048
  7. B COMPLEX [Concomitant]
     Dosage: 1 TAB PO DAILY
     Route: 048
  8. GENTAMICIN [Concomitant]
     Dosage: ONE DROP IN BOTH EYES QID FOR 4 DAYS
     Route: 047
  9. SODIUM CHLORIDE [Concomitant]
     Dosage: 1 DROP, THREE TIMES DAILY TO BOTH EYES
     Route: 047
  10. PROPYLENE GLYCOL [Concomitant]
     Dosage: TID OU (0.4%-0.3% EYE DROPPERETTE)
     Route: 047
  11. CHOLECALCIFEROL [Concomitant]
     Dosage: TAKE ONE TABLET DAILY
     Route: 065
  12. CLOPIDOGREL BISULFATE [Concomitant]
     Dosage: TAKE ONE TABLET DAILY
     Route: 065
  13. ASPIRIN [Concomitant]
     Dosage: TAKE ONE TABLET DAILY
     Route: 065
  14. RANITIDINE HCL [Concomitant]
     Dosage: TAKE ONE TABLET DAILY
     Route: 065
  15. GLIMEPIRIDE [Concomitant]
     Dosage: TAKE ONE TABLET DAILY
     Route: 065
  16. METFORMIN HYDROCHLORIDE [Concomitant]
     Dosage: 750 MG BEFORE LUNCH AND 250 MG BEFORE DINNER
     Route: 065
  17. RAMIPRIL [Concomitant]
     Dosage: TAKE ONE TABLET DAILY
     Route: 065
  18. LEVOTHYROXINE [Concomitant]
     Dosage: 1 TAB PO ONCE DAILY
     Route: 048
  19. HYDROCHLOROTHIAZIDE [Concomitant]
     Route: 048

REACTIONS (9)
  - Erythema of eyelid [Recovering/Resolving]
  - Eyelid oedema [Recovering/Resolving]
  - Eyelid irritation [Unknown]
  - Ocular hypertension [Unknown]
  - Dry skin [Unknown]
  - Hypertension [Unknown]
  - Dyspnoea [Unknown]
  - Gastritis [Unknown]
  - Vitreous detachment [Unknown]
